FAERS Safety Report 7373138-7 (Version None)
Quarter: 2011Q1

REPORT INFORMATION
  Report Type: 
  Country: None (occurrence: None)
  Receive Date: 20110324
  Receipt Date: 20110321
  Transmission Date: 20110831
  Serious: Yes (Other)
  Sender: FDA-Public Use
  Company Number: US-PFIZER INC-2011062601

PATIENT
  Sex: Male
  Weight: 100 kg

DRUGS (11)
  1. DETROL LA [Suspect]
     Indication: URINARY INCONTINENCE
     Dosage: 4 MG, DAILY
     Route: 048
     Dates: start: 20090101
  2. DEXLANSOPRAZOLE [Concomitant]
     Dosage: 30 MG, UNK
  3. LOVAZA [Concomitant]
     Dosage: 1200 MG, UNK
  4. LEVOTHYROXINE [Concomitant]
     Indication: HYPOTHYROIDISM
     Dosage: 100UG, UNK
  5. LISINOPRIL [Concomitant]
     Indication: HYPERTENSION
     Dosage: 5 MG, UNK
  6. CARDURA [Concomitant]
     Dosage: UNK
  7. ACETYLSALICYLIC ACID [Concomitant]
     Dosage: 81 MG, UNK
  8. LIPITOR [Concomitant]
     Indication: BLOOD CHOLESTEROL INCREASED
     Dosage: 10 MG, UNK
  9. METFORMIN [Concomitant]
     Indication: DIABETES MELLITUS
     Dosage: 1000 MG, 3X/DAY
  10. TOPROL-XL [Concomitant]
     Dosage: 50 MG, UNK
  11. CELEBREX [Concomitant]
     Dosage: UNK

REACTIONS (3)
  - DIARRHOEA [None]
  - GALLBLADDER DISORDER [None]
  - DRY MOUTH [None]
